FAERS Safety Report 6925269-0 (Version None)
Quarter: 2010Q3

REPORT INFORMATION
  Report Type: 
  Country: None (occurrence: None)
  Receive Date: 20100810
  Receipt Date: 20100723
  Transmission Date: 20110219
  Serious: Yes (Other)
  Sender: FDA-Public Use
  Company Number: GER/GER/10/0015046

PATIENT
  Age: 55 Year
  Sex: Female

DRUGS (4)
  1. VENLAFAXINE HCL [Suspect]
     Indication: DEPRESSION
     Dosage: 150 MG, 1 IN 1 D
  2. BUPROPION HCL [Suspect]
     Indication: DEPRESSION
     Dosage: 300 MG, 1 IN 1 D
  3. MIRTAZAPINE [Concomitant]
  4. OPIPRAMOL (OPIPRAMOL) [Concomitant]

REACTIONS (3)
  - ANTIDEPRESSANT DRUG LEVEL ABOVE THERAPEUTIC [None]
  - ANTIDEPRESSANT DRUG LEVEL DECREASED [None]
  - DRUG INTERACTION [None]
